FAERS Safety Report 9782100 (Version 1)
Quarter: 2013Q4

REPORT INFORMATION
  Report Type: Report from Study
  Country: AU (occurrence: AU)
  Receive Date: 20131226
  Receipt Date: 20131226
  Transmission Date: 20140711
  Serious: Yes (Hospitalization)
  Sender: FDA-Public Use
  Company Number: AU-ALEXION PHARMACEUTICALS INC.-A201304202

PATIENT
  Age: 24 Year
  Sex: Female

DRUGS (19)
  1. ECULIZUMAB [Suspect]
     Indication: HAEMOLYTIC URAEMIC SYNDROME
     Dosage: 900 MG, QW
     Route: 042
     Dates: start: 20130311, end: 20130402
  2. ECULIZUMAB [Suspect]
     Dosage: 1200 MG, Q2W
     Route: 042
     Dates: start: 20130412
  3. HYDRALAZINE [Concomitant]
     Indication: HYPERTENSION
     Dosage: 50 MG, QID
     Route: 048
     Dates: start: 20120222
  4. LERCANIDIPINE [Concomitant]
     Indication: HYPERTENSION
     Dosage: 20 MG, QD
     Route: 048
     Dates: start: 20120307
  5. METOPROLOL [Concomitant]
     Indication: HYPERTENSION
     Dosage: 100 MG, BID
     Route: 048
     Dates: start: 20130314
  6. GLICLAZIDE MR [Concomitant]
     Indication: DIABETES MELLITUS
     Dosage: UNK
     Route: 048
     Dates: start: 20121120
  7. TACROLIMUS [Concomitant]
     Indication: IMMUNOSUPPRESSION
     Dosage: UNK
     Route: 048
     Dates: start: 20120125
  8. PREDNISOLONE [Concomitant]
     Indication: IMMUNOSUPPRESSION
     Dosage: UNK
     Route: 048
     Dates: start: 20120126
  9. OMEPRAZOLE [Concomitant]
     Indication: GASTROOESOPHAGEAL REFLUX DISEASE
     Dosage: UNK
     Route: 048
     Dates: start: 20120703
  10. CHOLECALCIFEROL [Concomitant]
     Indication: PROPHYLAXIS
     Dosage: UNK
     Route: 048
     Dates: start: 20120126
  11. SODIUM BICARBONATE [Concomitant]
     Indication: PROPHYLAXIS
     Dosage: UNK
     Route: 048
     Dates: start: 20121224
  12. DARBEPOETIN ALFA [Concomitant]
     Indication: ANAEMIA
     Dosage: UNK
     Route: 058
     Dates: start: 20121120
  13. SULPHAMETHOXAZOLE [Concomitant]
     Indication: PROPHYLAXIS
     Dosage: UNK
     Route: 048
     Dates: start: 20130508
  14. ASPIRIN [Concomitant]
     Indication: PROPHYLAXIS
     Dosage: UNK
     Route: 048
     Dates: start: 20130616
  15. FERROUS SULFATE [Concomitant]
     Indication: ANAEMIA
     Dosage: 325 MG, UNK
     Route: 048
     Dates: start: 20130613
  16. LINCOMYCIN [Concomitant]
     Indication: ANTIBIOTIC THERAPY
     Dosage: UNK
     Route: 042
     Dates: start: 20131202, end: 20131202
  17. CEFAZOLIN [Concomitant]
     Indication: ANTIBIOTIC THERAPY
     Dosage: UNK
     Route: 042
     Dates: start: 20131202, end: 20131202
  18. FLAGYL [Concomitant]
     Indication: ANTIBIOTIC THERAPY
     Dosage: UNK
     Route: 042
     Dates: start: 20131202, end: 20131202
  19. MEROPENEM [Concomitant]
     Indication: ANTIBIOTIC THERAPY
     Dosage: UNK
     Route: 042
     Dates: start: 20131202, end: 20131206

REACTIONS (3)
  - Abortion incomplete [Recovered/Resolved]
  - Renal impairment [Recovered/Resolved]
  - Sepsis [Recovered/Resolved]
